FAERS Safety Report 16874218 (Version 1)
Quarter: 2019Q4

REPORT INFORMATION
  Report Type: Spontaneous
  Country: CN (occurrence: CN)
  Receive Date: 20191001
  Receipt Date: 20191001
  Transmission Date: 20200122
  Serious: Yes (Hospitalization)
  Sender: FDA-Public Use
  Company Number: CN-BAXTER-2019BAX018889

PATIENT
  Age: 52 Year
  Sex: Male
  Weight: 65 kg

DRUGS (14)
  1. 0.9% SODIUM CHLORIDE INJECTION [Suspect]
     Active Substance: SODIUM CHLORIDE
     Indication: MEDICATION DILUTION
     Dosage: ENDOXAN 1.2G + 0.9% NS 80 ML; DAY 6
     Route: 042
     Dates: start: 20190414, end: 20190414
  2. 0.9% SODIUM CHLORIDE INJECTION [Suspect]
     Active Substance: SODIUM CHLORIDE
     Dosage: ENDOXAN+ 0.9% NS; DOSE RE-INTRODUCED
     Route: 042
  3. 0.9% SODIUM CHLORIDE INJECTION [Suspect]
     Active Substance: SODIUM CHLORIDE
     Dosage: ETOPOSIDE+ EPIRUBICIN+ 0.9% NS; DOSE RE-INTRODUCED
     Route: 041
  4. ETOPOSIDE. [Suspect]
     Active Substance: ETOPOSIDE
     Indication: LYMPHOMA
     Dosage: ETOPOSIDE 60 MG + EPIRUBICIN 20 MG + 0.9% NS 500 ML; DAY 2-5
     Route: 041
     Dates: start: 20190410, end: 20190413
  5. ETOPOSIDE. [Suspect]
     Active Substance: ETOPOSIDE
     Dosage: ETOPOSIDE + EPIRUBICIN+ 0.9% NS; DOSE RE-INTRODUCED
     Route: 041
  6. EPIRUBICIN HYDROCHLORIDE. [Suspect]
     Active Substance: EPIRUBICIN HYDROCHLORIDE
     Dosage: ETOPOSIDE + EPIRUBICIN+ 0.9% NS; DOSE RE-INTRODUCED
     Route: 041
  7. 0.9% SODIUM CHLORIDE INJECTION [Suspect]
     Active Substance: SODIUM CHLORIDE
     Dosage: MABTHERA 700 MG + 0.9% NS 700 ML; DAY 1
     Route: 041
     Dates: start: 20190409, end: 20190409
  8. ENDOXAN [Suspect]
     Active Substance: CYCLOPHOSPHAMIDE
     Dosage: ENDOXAN + 0.9% NS; DOSE RE-INTRODUCED
     Route: 042
  9. EPIRUBICIN HYDROCHLORIDE. [Suspect]
     Active Substance: EPIRUBICIN HYDROCHLORIDE
     Indication: LYMPHOMA
     Dosage: ETOPOSIDE 60 MG + EPIRUBICIN 20 MG + 0.9% NS 500 ML; DAY 2-5
     Route: 041
     Dates: start: 20190410, end: 20190413
  10. ENDOXAN [Suspect]
     Active Substance: CYCLOPHOSPHAMIDE
     Indication: LYMPHOMA
     Dosage: ENDOXAN 1.2G + 0.9% NS 80 ML; DAY 6
     Route: 042
     Dates: start: 20190414, end: 20190414
  11. MABTHERA [Suspect]
     Active Substance: RITUXIMAB
     Dosage: MABTHERA + 0.9% NS; DOSE RE-INTRODUCED
     Route: 041
  12. 0.9% SODIUM CHLORIDE INJECTION [Suspect]
     Active Substance: SODIUM CHLORIDE
     Dosage: ETOPOSIDE 60 MG + EPIRUBICIN 20 MG + 0.9% NS 500 ML; DAY 2-5
     Route: 041
     Dates: start: 20190410, end: 20190413
  13. MABTHERA [Suspect]
     Active Substance: RITUXIMAB
     Indication: LYMPHOMA
     Dosage: MABTHERA 700 MG + 0.9% NS 700 ML; DAY 1
     Route: 041
     Dates: start: 20190409, end: 20190409
  14. 0.9% SODIUM CHLORIDE INJECTION [Suspect]
     Active Substance: SODIUM CHLORIDE
     Dosage: MABTHERA + 0.9% NS; DOSE RE-INTRODUCED
     Route: 041

REACTIONS (1)
  - Bone marrow failure [Recovering/Resolving]

NARRATIVE: CASE EVENT DATE: 20190419
